FAERS Safety Report 23730519 (Version 1)
Quarter: 2024Q2

REPORT INFORMATION
  Report Type: Spontaneous
  Country: US (occurrence: US)
  Receive Date: 20240411
  Receipt Date: 20240411
  Transmission Date: 20240716
  Serious: Yes (Other)
  Sender: FDA-Public Use
  Company Number: US-ABBVIE-5711154

PATIENT

DRUGS (11)
  1. HUMIRA [Suspect]
     Active Substance: ADALIMUMAB
     Indication: Rheumatoid arthritis
     Route: 058
     Dates: start: 202309
  2. SPIKEVAX (ELASOMERAN) [Suspect]
     Active Substance: ELASOMERAN
     Indication: COVID-19 prophylaxis
     Dosage: DOSE 6
     Route: 030
     Dates: start: 20231012
  3. AQUAPHOR [Suspect]
     Active Substance: PETROLATUM
     Indication: Pruritus
     Route: 061
     Dates: start: 2023
  4. PARAFFIN [Suspect]
     Active Substance: PARAFFIN
     Indication: Product used for unknown indication
     Route: 065
     Dates: start: 2023
  5. MODERNA COVID-19 VACCINE [Suspect]
     Active Substance: ELASOMERAN
     Indication: COVID-19 prophylaxis
     Dosage: DOSE 5
     Route: 030
     Dates: start: 20220709, end: 20220709
  6. MODERNA COVID-19 VACCINE [Suspect]
     Active Substance: ELASOMERAN
     Indication: COVID-19 prophylaxis
     Dosage: DOSE 2
     Route: 030
     Dates: start: 20210327, end: 20210327
  7. MODERNA COVID-19 VACCINE [Suspect]
     Active Substance: ELASOMERAN
     Indication: COVID-19 prophylaxis
     Dosage: DOSE 4
     Route: 030
     Dates: start: 20220705, end: 20220705
  8. MODERNA COVID-19 VACCINE [Suspect]
     Active Substance: ELASOMERAN
     Indication: COVID-19 prophylaxis
     Dosage: DOSE 1
     Route: 030
     Dates: start: 20210227, end: 20210227
  9. MODERNA COVID-19 VACCINE [Suspect]
     Active Substance: ELASOMERAN
     Indication: COVID-19 prophylaxis
     Dosage: DOSE 3
     Route: 030
     Dates: start: 20211111, end: 20211111
  10. LANOLIN ALCOHOLS [Suspect]
     Active Substance: LANOLIN ALCOHOLS
     Indication: Product used for unknown indication
     Route: 065
  11. PETROLATUM [Suspect]
     Active Substance: PETROLATUM
     Indication: Product used for unknown indication
     Route: 065
     Dates: start: 2023

REACTIONS (13)
  - Mechanical urticaria [Not Recovered/Not Resolved]
  - Miliaria [Not Recovered/Not Resolved]
  - Neutropenia [Not Recovered/Not Resolved]
  - Flushing [Recovered/Resolved]
  - Pruritus [Recovered/Resolved]
  - Erythema [Unknown]
  - Rash papular [Recovered/Resolved]
  - Vomiting [Unknown]
  - Dizziness [Unknown]
  - Vertigo [Unknown]
  - Rheumatoid arthritis [Unknown]
  - Dry skin [Unknown]
  - Paraesthesia [Unknown]

NARRATIVE: CASE EVENT DATE: 20230101
